FAERS Safety Report 11622576 (Version 1)
Quarter: 2015Q4

REPORT INFORMATION
  Report Type: Spontaneous
  Country: US (occurrence: None)
  Receive Date: 20151009
  Receipt Date: 20151009
  Transmission Date: 20160304
  Serious: Yes (Hospitalization)
  Sender: FDA-Public Use
  Company Number: None

PATIENT
  Age: 58 Year
  Sex: Male

DRUGS (4)
  1. SULFASALAZINE. [Suspect]
     Active Substance: SULFASALAZINE
     Indication: REITER^S SYNDROME
     Dates: start: 20140108, end: 20140218
  2. OMEPRAZOLE. [Concomitant]
     Active Substance: OMEPRAZOLE
  3. MELOXICAM. [Suspect]
     Active Substance: MELOXICAM
     Indication: REITER^S SYNDROME
     Dates: start: 20131218, end: 20140218
  4. CLONAZEPAM. [Concomitant]
     Active Substance: CLONAZEPAM

REACTIONS (3)
  - Herpes zoster [None]
  - Skin cancer [None]
  - Drug-induced liver injury [None]

NARRATIVE: CASE EVENT DATE: 20140218
